FAERS Safety Report 7630511-7 (Version None)
Quarter: 2011Q3

REPORT INFORMATION
  Report Type: 
  Country: None (occurrence: None)
  Receive Date: 20110722
  Receipt Date: 20110708
  Transmission Date: 20111222
  Serious: Yes (Other)
  Sender: FDA-Public Use
  Company Number: GB-WATSON-2011-10685

PATIENT
  Age: 31 Year
  Sex: Female

DRUGS (3)
  1. ALBUTEROL [Suspect]
     Indication: CHRONIC OBSTRUCTIVE PULMONARY DISEASE
     Dosage: UNK
     Route: 055
  2. FLUTICASONE PROPIONATE/SALMETEROL [Suspect]
     Indication: ASTHMA
     Dosage: UNK
     Route: 055
  3. AMINOPHYLLIN TAB [Concomitant]
     Indication: PRODUCT USED FOR UNKNOWN INDICATION
     Dosage: UNK
     Route: 065

REACTIONS (2)
  - DRUG INEFFECTIVE [None]
  - ASTHMA [None]
